FAERS Safety Report 8869054 (Version 1)
Quarter: 2012Q4

REPORT INFORMATION
  Report Type: Spontaneous
  Country: DK (occurrence: None)
  Receive Date: 20121022
  Receipt Date: 20121022
  Transmission Date: 20130627
  Serious: Yes (Hospitalization)
  Sender: FDA-Public Use
  Company Number: 2012MA012443

PATIENT
  Age: 48 Year
  Sex: Female

DRUGS (4)
  1. DIAZEPAM TABLETS [Suspect]
     Indication: SUICIDE ATTEMPT
     Route: 048
     Dates: start: 20121004, end: 20121004
  2. OMEPRAZOLE (OMEPRAZOLE) [Suspect]
     Indication: SUICIDE ATTEMPT
     Route: 048
     Dates: start: 20121004, end: 20121004
  3. POTASSIUM CHLORIDE (POTASSIUM CHLORIDE) [Suspect]
     Route: 048
     Dates: start: 20121004, end: 20121004
  4. ASPARGIN (ASPARTIC ACID) [Suspect]
     Indication: SUICIDE ATTEMPT
     Route: 048
     Dates: start: 20121004, end: 20121004

REACTIONS (6)
  - Bradykinesia [None]
  - Speech disorder [None]
  - Tachycardia [None]
  - Bradyphrenia [None]
  - Intentional overdose [None]
  - Suicide attempt [None]
